FAERS Safety Report 6418755-3 (Version None)
Quarter: 2009Q4

REPORT INFORMATION
  Report Type: 
  Country: None (occurrence: None)
  Receive Date: 20091026
  Receipt Date: 20091014
  Transmission Date: 20100525
  Serious: Yes (Hospitalization)
  Sender: FDA-Public Use
  Company Number: 2009AC000035

PATIENT
  Age: 55 Year
  Sex: Female

DRUGS (21)
  1. DIGOXIN [Suspect]
     Indication: CARDIAC FAILURE
     Dosage: 0.25 MG; QD; PO
     Route: 048
  2. TOPROL-XL [Concomitant]
  3. PROTONIX [Concomitant]
  4. ZYRTEC [Concomitant]
  5. KEFLEX [Concomitant]
  6. WELLBUTRIN [Concomitant]
  7. BEXTRA [Concomitant]
  8. LORTAB [Concomitant]
  9. ASPIRIN [Concomitant]
  10. PENICILLIN VK [Concomitant]
  11. ZYDONE [Concomitant]
  12. VALIUM [Concomitant]
  13. PHENERGAN HCL [Concomitant]
  14. ZITHROMAX [Concomitant]
  15. TAMIFLU [Concomitant]
  16. DURATUSS [Concomitant]
  17. PROVENTIL-HFA [Concomitant]
  18. MEDROL [Concomitant]
  19. TUSSIONEX [Concomitant]
  20. COUMADIN [Concomitant]
  21. LEVAQUIN [Concomitant]

REACTIONS (17)
  - ABDOMINAL DISCOMFORT [None]
  - ATRIAL FIBRILLATION [None]
  - ATRIAL TACHYCARDIA [None]
  - ATRIOVENTRICULAR BLOCK COMPLETE [None]
  - DIABETES MELLITUS [None]
  - DIARRHOEA [None]
  - DIZZINESS [None]
  - DYSPEPSIA [None]
  - GASTROINTESTINAL HAEMORRHAGE [None]
  - GASTROOESOPHAGEAL REFLUX DISEASE [None]
  - INJURY [None]
  - LEUKOCYTOSIS [None]
  - OEDEMA [None]
  - PAIN [None]
  - PALPITATIONS [None]
  - PNEUMONIA [None]
  - PULMONARY EMBOLISM [None]
